FAERS Safety Report 9925151 (Version 1)
Quarter: 2014Q1

REPORT INFORMATION
  Report Type: Spontaneous
  Country: US (occurrence: US)
  Receive Date: 20140226
  Receipt Date: 20140226
  Transmission Date: 20141002
  Serious: No
  Sender: FDA-Public Use
  Company Number: US-009507513-1402USA012464

PATIENT
  Sex: Female

DRUGS (3)
  1. COPPERTONE SPORT LOTION SPF 15 [Suspect]
     Indication: PRODUCT USED FOR UNKNOWN INDICATION
     Dosage: UNK, UNKNOWN
     Route: 061
  2. COPPERTONE SPORT LOTION SPF 15 [Suspect]
     Dosage: UNK
     Route: 061
  3. COPPERTONE SPORT LOTION SPF 15 [Suspect]
     Dosage: UNK
     Route: 061

REACTIONS (1)
  - Expired drug administered [Unknown]
